FAERS Safety Report 4967308-2 (Version None)
Quarter: 2006Q2

REPORT INFORMATION
  Report Type: 
  Country: None (occurrence: None)
  Receive Date: 20060410
  Receipt Date: 20060327
  Transmission Date: 20061013
  Serious: Yes (Death)
  Sender: FDA-Public Use
  Company Number: AU-JNJFOC-20060306710

PATIENT
  Age: 74 Year
  Sex: Female

DRUGS (1)
  1. CLADRIBINE [Suspect]

REACTIONS (7)
  - HYPOXIA [None]
  - LOBAR PNEUMONIA [None]
  - LUNG INFILTRATION [None]
  - NEUTROPENIC SEPSIS [None]
  - PNEUMONIA [None]
  - SEPSIS [None]
  - WALDENSTROM'S MACROGLOBULINAEMIA REFRACTORY [None]
